FAERS Safety Report 22836788 (Version 9)
Quarter: 2025Q1

REPORT INFORMATION
  Report Type: Report from Study
  Country: AR (occurrence: AR)
  Receive Date: 20230818
  Receipt Date: 20250325
  Transmission Date: 20250409
  Serious: Yes (Hospitalization, Other)
  Sender: GLAXOSMITHKLINE
  Company Number: AR-GLAXOSMITHKLINE-AR2023AMR106198

PATIENT

DRUGS (2)
  1. MEPOLIZUMAB [Suspect]
     Active Substance: MEPOLIZUMAB
     Indication: Asthma
     Dosage: 100 MG, Q4W (1 DOSE, EVERY 28 DAYS)
     Dates: start: 20230622
  2. MEPOLIZUMAB [Suspect]
     Active Substance: MEPOLIZUMAB
     Indication: Asthma
     Dosage: 100 MG, MO

REACTIONS (8)
  - Asthmatic crisis [Recovering/Resolving]
  - Hospitalisation [Not Recovered/Not Resolved]
  - Asthma [Not Recovered/Not Resolved]
  - Influenza [Not Recovered/Not Resolved]
  - Dengue fever [Not Recovered/Not Resolved]
  - Gastric bypass [Not Recovered/Not Resolved]
  - Malnutrition [Unknown]
  - Anaemia [Unknown]

NARRATIVE: CASE EVENT DATE: 20230728
